FAERS Safety Report 24300287 (Version 2)
Quarter: 2024Q3

REPORT INFORMATION
  Report Type: Report from Study
  Country: US (occurrence: None)
  Receive Date: 20240909
  Receipt Date: 20240911
  Transmission Date: 20241016
  Serious: Yes (Life-Threatening, Other)
  Sender: ASTRAZENECA
  Company Number: 2024A203294

PATIENT
  Sex: Female

DRUGS (1)
  1. FASENRA [Suspect]
     Active Substance: BENRALIZUMAB
     Route: 058

REACTIONS (23)
  - Respiratory failure [Unknown]
  - Atrial fibrillation [Unknown]
  - Acute respiratory distress syndrome [Unknown]
  - Pulmonary fibrosis [Unknown]
  - Rheumatoid arthritis [Unknown]
  - COVID-19 [Unknown]
  - Pulmonary mass [Unknown]
  - Influenza [Unknown]
  - Graves^ disease [Unknown]
  - Pulmonary pain [Unknown]
  - Blood immunoglobulin E increased [Unknown]
  - Eosinophil count abnormal [Unknown]
  - Adverse drug reaction [Unknown]
  - Cough [Unknown]
  - Adverse drug reaction [Unknown]
  - Pleural effusion [Unknown]
  - Computerised tomogram abdomen abnormal [Unknown]
  - Infection [Unknown]
  - Cough [Unknown]
  - Adverse event [Unknown]
  - Laboratory test [Unknown]
  - Atelectasis [Unknown]
  - Dyspnoea [Unknown]
